FAERS Safety Report 4529866-1 (Version None)
Quarter: 2004Q4

REPORT INFORMATION
  Report Type: 
  Country: None (occurrence: None)
  Receive Date: 20041217
  Receipt Date: 20041207
  Transmission Date: 20050328
  Serious: Yes (Other)
  Sender: FDA-Public Use
  Company Number: US-JNJFOC-20041202247

PATIENT
  Sex: Male
  Weight: 90.72 kg

DRUGS (12)
  1. REMICADE [Suspect]
     Indication: CROHN'S DISEASE
     Route: 042
  2. PREDNISONE [Concomitant]
     Indication: INFLAMMATION
  3. ASACOL [Concomitant]
     Indication: CROHN'S DISEASE
  4. LOMOTIL [Concomitant]
  5. LOMOTIL [Concomitant]
  6. DONNATAL [Concomitant]
  7. DONNATAL [Concomitant]
  8. DONNATAL [Concomitant]
  9. DONNATAL [Concomitant]
  10. VICODIN [Concomitant]
  11. VICODIN [Concomitant]
     Indication: PAIN
  12. DURAGESIC [Concomitant]
     Indication: PAIN

REACTIONS (1)
  - UPPER LIMB FRACTURE [None]
